FAERS Safety Report 9462804 (Version 1)
Quarter: 2013Q3

REPORT INFORMATION
  Report Type: Spontaneous
  Country: US (occurrence: US)
  Receive Date: 20130816
  Receipt Date: 20130816
  Transmission Date: 20140515
  Serious: Yes (Hospitalization)
  Sender: FDA-Public Use
  Company Number: US-SUCAMPO PHARMA AMERICAS, INC-SPI201300552

PATIENT
  Age: 74 Year
  Sex: Female
  Weight: 53.06 kg

DRUGS (3)
  1. AMITIZA [Suspect]
     Indication: CONSTIPATION
     Dosage: 24 MCG, SINGLE
     Route: 048
     Dates: start: 2013, end: 2013
  2. AMITIZA [Suspect]
     Dosage: 24 MCG, BID
     Route: 048
     Dates: start: 201308
  3. UNKNOWN MEDICATION [Concomitant]
     Indication: GASTRIC ULCER
     Dosage: UNK
     Route: 048

REACTIONS (2)
  - Constipation [Not Recovered/Not Resolved]
  - Drug ineffective [Not Recovered/Not Resolved]
